FAERS Safety Report 21686757 (Version 1)
Quarter: 2022Q4

REPORT INFORMATION
  Report Type: Report from Study
  Country: CA (occurrence: CA)
  Receive Date: 20221206
  Receipt Date: 20221206
  Transmission Date: 20230113
  Serious: Yes (Other)
  Sender: FDA-Public Use
  Company Number: CA-BAUSCH-BL-2022-026142

PATIENT
  Sex: Female

DRUGS (3)
  1. CONTRAVE [Suspect]
     Active Substance: BUPROPION HYDROCHLORIDE\NALTREXONE HYDROCHLORIDE
     Indication: Weight control
     Dosage: 90/8MG, FIRST ATTEMPT
     Route: 048
     Dates: start: 2022, end: 2022
  2. CONTRAVE [Suspect]
     Active Substance: BUPROPION HYDROCHLORIDE\NALTREXONE HYDROCHLORIDE
     Dosage: 90/8MG, 2 TABS/DAY, FIRST ATTEMPT
     Route: 048
     Dates: start: 2022, end: 20221027
  3. CONTRAVE [Suspect]
     Active Substance: BUPROPION HYDROCHLORIDE\NALTREXONE HYDROCHLORIDE
     Dosage: 90/8MG, 1 TAB Q AM, SECOND ATTEMPT
     Route: 048
     Dates: start: 20221118

REACTIONS (4)
  - Surgery [Unknown]
  - Procedural pain [Unknown]
  - Illness [Unknown]
  - Intentional product use issue [Unknown]

NARRATIVE: CASE EVENT DATE: 20220101
